FAERS Safety Report 5451266-0 (Version None)
Quarter: 2007Q3

REPORT INFORMATION
  Report Type: 
  Country: None (occurrence: None)
  Receive Date: 20070911
  Receipt Date: 20070911
  Transmission Date: 20080115
  Serious: Yes (Hospitalization)
  Sender: FDA-Public Use
  Company Number: None

PATIENT
  Sex: Female
  Weight: 57.27 kg

DRUGS (3)
  1. CISPLATIN [Suspect]
     Dosage: 78 MG
  2. DOXORUBICIN HYDROCHLORIDE [Suspect]
     Dosage: 70 MG
  3. TAXOL [Suspect]
     Dosage: 250 MG

REACTIONS (13)
  - BLOOD PRESSURE DIASTOLIC DECREASED [None]
  - BLOOD PRESSURE SYSTOLIC INCREASED [None]
  - CLOSTRIDIAL INFECTION [None]
  - CONSTIPATION [None]
  - CULTURE URINE POSITIVE [None]
  - DIARRHOEA [None]
  - HAEMATOCRIT DECREASED [None]
  - HAEMOGLOBIN DECREASED [None]
  - KLEBSIELLA INFECTION [None]
  - NAUSEA [None]
  - NEUTROPHIL COUNT DECREASED [None]
  - VOMITING [None]
  - WHITE BLOOD CELL COUNT DECREASED [None]
